FAERS Safety Report 4731298-8 (Version None)
Quarter: 2005Q3

REPORT INFORMATION
  Report Type: 
  Country: None (occurrence: None)
  Receive Date: 20050802
  Receipt Date: 20050721
  Transmission Date: 20060218
  Serious: Yes (Other)
  Sender: FDA-Public Use
  Company Number: CZ-AMGEN-UK143657

PATIENT
  Sex: Female
  Weight: 90 kg

DRUGS (5)
  1. NEUPOGEN [Suspect]
     Indication: MYELODYSPLASTIC SYNDROME
     Route: 058
     Dates: start: 20030601, end: 20050621
  2. PREDNISONE [Concomitant]
     Route: 048
     Dates: start: 20030101
  3. RANISAN [Concomitant]
     Route: 048
     Dates: start: 20030101
  4. MODURETIC 5-50 [Concomitant]
     Route: 048
     Dates: start: 20030101
  5. ASCORBIC ACID [Concomitant]
     Route: 048
     Dates: start: 20030101

REACTIONS (3)
  - CHILLS [None]
  - DYSPNOEA [None]
  - PYREXIA [None]
